FAERS Safety Report 15715077 (Version 1)
Quarter: 2018Q4

REPORT INFORMATION
  Report Type: Spontaneous
  Country: GB (occurrence: GB)
  Receive Date: 20181212
  Receipt Date: 20181212
  Transmission Date: 20190205
  Serious: Yes (Other)
  Sender: FDA-Public Use
  Company Number: PHHY2018GB179083

PATIENT
  Age: 16 Year
  Sex: Male

DRUGS (4)
  1. TRILEPTAL [Suspect]
     Active Substance: OXCARBAZEPINE
     Dosage: 450 MG, BID
     Route: 048
     Dates: start: 20181204
  2. TRILEPTAL [Suspect]
     Active Substance: OXCARBAZEPINE
     Indication: TEMPORAL LOBE EPILEPSY
     Dosage: 150 MG, UNK
     Route: 065
  3. TRILEPTAL [Suspect]
     Active Substance: OXCARBAZEPINE
     Indication: EPILEPSY
     Dosage: 300 MG, BID
     Route: 065
  4. PARACETAMOL [Concomitant]
     Active Substance: ACETAMINOPHEN
     Indication: PRODUCT USED FOR UNKNOWN INDICATION
     Route: 065

REACTIONS (14)
  - Schizophrenia [Unknown]
  - Anxiety [Unknown]
  - Anger [Recovering/Resolving]
  - Psychotic disorder [Recovering/Resolving]
  - Psychomotor hyperactivity [Unknown]
  - Personality change [Unknown]
  - Abnormal dreams [Unknown]
  - Agitation [Unknown]
  - Aggression [Unknown]
  - Hunger [Unknown]
  - Dissociative identity disorder [Unknown]
  - Abnormal behaviour [Unknown]
  - Drug intolerance [Unknown]
  - Seizure [Unknown]

NARRATIVE: CASE EVENT DATE: 20181204
